FAERS Safety Report 25432963 (Version 1)
Quarter: 2025Q2

REPORT INFORMATION
  Report Type: Spontaneous
  Country: US (occurrence: None)
  Receive Date: 20250613
  Receipt Date: 20250613
  Transmission Date: 20250717
  Serious: No
  Sender: MDD OPERATIONS
  Company Number: US-MDD US Operations-MDD202405-001592

PATIENT
  Age: 78 Year
  Sex: Female

DRUGS (3)
  1. APOKYN [Suspect]
     Active Substance: APOMORPHINE HYDROCHLORIDE
     Indication: Parkinson^s disease
     Dates: start: 20240430
  2. APOKYN [Suspect]
     Active Substance: APOMORPHINE HYDROCHLORIDE
  3. APOKYN [Suspect]
     Active Substance: APOMORPHINE HYDROCHLORIDE
     Dosage: 30MG/3ML
     Route: 058

REACTIONS (9)
  - Blood pressure increased [Unknown]
  - Reading disorder [Unknown]
  - Erythema [Recovered/Resolved]
  - Rash macular [Recovered/Resolved]
  - Pain in extremity [Recovered/Resolved]
  - Somnolence [Unknown]
  - Injection site bruising [Unknown]
  - Injection site reaction [Recovered/Resolved]
  - Incorrect dose administered [Unknown]

NARRATIVE: CASE EVENT DATE: 20240501
